FAERS Safety Report 9550096 (Version 1)
Quarter: 2013Q3

REPORT INFORMATION
  Report Type: Report from Study
  Country: AR (occurrence: AR)
  Receive Date: 20130924
  Receipt Date: 20130924
  Transmission Date: 20140515
  Serious: Yes (Other)
  Sender: FDA-Public Use
  Company Number: AR-ROCHE-1279558

PATIENT
  Sex: Female

DRUGS (1)
  1. RANIBIZUMAB [Suspect]
     Indication: NEOVASCULARISATION
     Route: 050
     Dates: start: 201208

REACTIONS (4)
  - Haemorrhage [Recovered/Resolved]
  - Bronchitis [Recovered/Resolved]
  - Anaemia [Recovered/Resolved]
  - Nasal congestion [Recovered/Resolved]
